FAERS Safety Report 24456457 (Version 2)
Quarter: 2024Q4

REPORT INFORMATION
  Report Type: Report from Study
  Country: US (occurrence: US)
  Receive Date: 20241017
  Receipt Date: 20241018
  Transmission Date: 20250115
  Serious: No
  Sender: ROCHE
  Company Number: US-ROCHE-3504725

PATIENT
  Age: 71 Year
  Sex: Female

DRUGS (4)
  1. RITUXAN [Suspect]
     Active Substance: RITUXIMAB
     Indication: Warm autoimmune haemolytic anaemia
     Dosage: 619 MG: STRENGHT?ONCE IN 28 DAYS 1 CYCLE? FREQUENCY TEXT:Q 28 DAYS
     Route: 065
  2. RITUXAN [Suspect]
     Active Substance: RITUXIMAB
     Indication: Chronic myelomonocytic leukaemia
  3. ONDANSETRON [Concomitant]
     Active Substance: ONDANSETRON
  4. FAMOTIDINE [Concomitant]
     Active Substance: FAMOTIDINE

REACTIONS (2)
  - Off label use [Unknown]
  - No adverse event [Unknown]
